FAERS Safety Report 5137853-8 (Version None)
Quarter: 2006Q4

REPORT INFORMATION
  Report Type: 
  Country: None (occurrence: None)
  Receive Date: 20061030
  Receipt Date: 20060125
  Transmission Date: 20070319
  Serious: No
  Sender: FDA-Public Use
  Company Number: US-GLAXOSMITHKLINE-A0590922A

PATIENT
  Age: 80 Year
  Sex: Male

DRUGS (19)
  1. ADVAIR HFA [Suspect]
     Indication: CHRONIC OBSTRUCTIVE PULMONARY DISEASE
     Dosage: 1PUFF TWICE PER DAY
     Route: 055
     Dates: start: 20040101
  2. LIOTHYRONINE [Concomitant]
  3. NIZATIDINE [Concomitant]
  4. LASIX [Concomitant]
  5. K-DUR 10 [Concomitant]
  6. PREDNISONE TAB [Concomitant]
  7. CORDARONE [Concomitant]
  8. FLOMAX [Concomitant]
  9. VITAMINS [Concomitant]
  10. ASPIRIN [Concomitant]
  11. CITRUCEL [Concomitant]
  12. SPIRACTIN [Concomitant]
  13. LIPITOR [Concomitant]
  14. UNKNOWN MEDICATION [Concomitant]
  15. COLACE [Concomitant]
  16. FOSAMAX [Concomitant]
  17. SLEEPING PILL [Concomitant]
  18. TYLENOL [Concomitant]
  19. ALBUTEROL [Concomitant]

REACTIONS (1)
  - DYSPHONIA [None]
